FAERS Safety Report 24868131 (Version 1)
Quarter: 2025Q1

REPORT INFORMATION
  Report Type: Spontaneous
  Country: US (occurrence: None)
  Receive Date: 20250120
  Receipt Date: 20250120
  Transmission Date: 20250409
  Serious: Yes (unspecified)
  Sender: FDA-CTU
  Company Number: None

PATIENT
  Age: 72 Year
  Sex: Female
  Weight: 55.79 kg

DRUGS (2)
  1. KISUNLA [Suspect]
     Active Substance: DONANEMAB-AZBT
     Indication: Cognitive disorder
     Route: 042
     Dates: start: 20241226, end: 20241226
  2. Sodium Chloride 100 ml [Concomitant]
     Dates: start: 20241226, end: 20241226

REACTIONS (5)
  - Infusion related reaction [None]
  - Flushing [None]
  - Irregular breathing [None]
  - Feeling hot [None]
  - Cyanosis [None]

NARRATIVE: CASE EVENT DATE: 20241226
